FAERS Safety Report 8122494-0 (Version None)
Quarter: 2012Q1

REPORT INFORMATION
  Report Type: 
  Country: None (occurrence: None)
  Receive Date: 20120208
  Receipt Date: 20110801
  Transmission Date: 20120608
  Serious: No
  Sender: FDA-Public Use
  Company Number: US-ASTRAZENECA-2011SE46068

PATIENT
  Age: 60 Year
  Sex: Male

DRUGS (2)
  1. ACCOLATE [Suspect]
     Route: 048
  2. NEXIUM [Suspect]
     Route: 048

REACTIONS (2)
  - MULTIPLE ALLERGIES [None]
  - ASTHMA [None]
